FAERS Safety Report 21204074 (Version 3)
Quarter: 2022Q4

REPORT INFORMATION
  Report Type: Report from Study
  Country: IL (occurrence: IL)
  Receive Date: 20220812
  Receipt Date: 20221218
  Transmission Date: 20230113
  Serious: Yes (Hospitalization, Other)
  Sender: FDA-Public Use
  Company Number: IL-ABBVIE-22K-082-4500351-00

PATIENT
  Age: 75 Year
  Sex: Male

DRUGS (3)
  1. CARBIDOPA\LEVODOPA [Suspect]
     Active Substance: CARBIDOPA\LEVODOPA
     Indication: Parkinson^s disease
     Route: 050
     Dates: start: 20200223
  2. CARBIDOPA\LEVODOPA [Suspect]
     Active Substance: CARBIDOPA\LEVODOPA
     Dosage: MORNING DOSE 6.0 ML, CONTINUOUS DAY 4.4 ML/HOUR, EXTRA DOSE 2.5 ML
     Route: 050
  3. CARBIDOPA\LEVODOPA [Suspect]
     Active Substance: CARBIDOPA\LEVODOPA
     Dosage: MORNING DOSE 6.0 ML, CONTINUOUS DAY 4.4 ML/HOUR, EXTRA DOSE 2.5 ML THERAPY DURATION 16 H
     Route: 050

REACTIONS (15)
  - Anaemia [Recovering/Resolving]
  - Gastric haemorrhage [Unknown]
  - Recurrent cancer [Unknown]
  - Myocardial infarction [Recovering/Resolving]
  - Constipation [Unknown]
  - Weight decreased [Unknown]
  - On and off phenomenon [Unknown]
  - Speech disorder [Unknown]
  - Dysphagia [Unknown]
  - Dyskinesia [Unknown]
  - Unevaluable event [Unknown]
  - Pain [Unknown]
  - Hypophagia [Unknown]
  - Weight decreased [Unknown]
  - Neoplasm [Unknown]

NARRATIVE: CASE EVENT DATE: 20220701
